FAERS Safety Report 6960152-6 (Version None)
Quarter: 2010Q3

REPORT INFORMATION
  Report Type: 
  Country: None (occurrence: None)
  Receive Date: 20100901
  Receipt Date: 20100826
  Transmission Date: 20110219
  Serious: Yes (Death, Other)
  Sender: FDA-Public Use
  Company Number: US-TYCO HEALTHCARE/MALLINCKRODT-T201000536

PATIENT
  Sex: Male
  Weight: 101.13 kg

DRUGS (29)
  1. OPTIMARK [Suspect]
     Indication: NUCLEAR MAGNETIC RESONANCE IMAGING BRAIN
     Dosage: 20 ML, SINGLE
     Route: 042
     Dates: start: 20050516, end: 20050516
  2. MAGNEVIST [Suspect]
     Indication: NUCLEAR MAGNETIC RESONANCE IMAGING
     Dosage: UNK, UNK, SINGLE
     Route: 042
     Dates: start: 20010913, end: 20010913
  3. MAGNEVIST [Suspect]
     Dosage: UNK, UNK, SINGLE
     Route: 042
     Dates: start: 20030430, end: 20030430
  4. MAGNEVIST [Suspect]
     Dosage: UNK UNK, SINGLE
     Dates: start: 20050614, end: 20050614
  5. OMNISCAN [Suspect]
     Indication: ARTERIOGRAM CAROTID
     Dosage: 42 ML, SINGLE
     Dates: start: 20020715, end: 20020715
  6. GADOLINIUM [Suspect]
     Indication: NUCLEAR MAGNETIC RESONANCE IMAGING
     Dosage: UNK UNK, SINGLE
     Dates: start: 20030430
  7. RENAGEL                            /01459901/ [Concomitant]
     Dosage: UNK
  8. CELEBREX [Concomitant]
     Dosage: UNK
  9. NIFEREX                            /01214501/ [Concomitant]
     Dosage: UNK
  10. ALLOPURINOL [Concomitant]
     Dosage: UNK
  11. PROTONIX [Concomitant]
     Dosage: UNK
  12. MINOXIDIL [Concomitant]
     Dosage: UNK
  13. NEPHROCAPS [Concomitant]
     Dosage: UNK
  14. REGLAN [Concomitant]
     Dosage: UNK
  15. ACEON                              /00790702/ [Concomitant]
     Dosage: UNK
  16. LEVAQUIN [Concomitant]
     Dosage: UNK
  17. ROCALTROL [Concomitant]
     Dosage: UNK
  18. ASPIRIN [Concomitant]
     Dosage: UNK
  19. FERROUS SULFATE [Concomitant]
     Dosage: UNK
  20. PLAVIX [Concomitant]
     Dosage: UNK
  21. TOPROL-XL [Concomitant]
     Dosage: UNK
  22. LIPITOR [Concomitant]
     Dosage: UNK
  23. DIGOXIN [Concomitant]
     Dosage: UNK
  24. CORDARONE [Concomitant]
     Dosage: UNK
  25. DOPAMINE HCL [Concomitant]
     Dosage: UNK
  26. HYDROXYZINE [Concomitant]
     Dosage: UNK
  27. PROCRIT                            /00909301/ [Concomitant]
     Dosage: UNK
  28. ZEMPLAR [Concomitant]
  29. ROBAXIN [Concomitant]

REACTIONS (15)
  - ARTERIOSCLEROSIS [None]
  - ASTHENIA [None]
  - CALCIPHYLAXIS [None]
  - ENCEPHALOPATHY [None]
  - GENERALISED OEDEMA [None]
  - HYPOAESTHESIA [None]
  - INTERVERTEBRAL DISC DISORDER [None]
  - LOWER LIMB FRACTURE [None]
  - NEPHROGENIC SYSTEMIC FIBROSIS [None]
  - PERICARDIAL EFFUSION [None]
  - PNEUMONIA [None]
  - SKIN ULCER [None]
  - STAPHYLOCOCCAL SEPSIS [None]
  - THERMAL BURN [None]
  - VENTRICULAR TACHYCARDIA [None]
